APPROVED DRUG PRODUCT: BACLOFEN
Active Ingredient: BACLOFEN
Strength: 20MG
Dosage Form/Route: TABLET;ORAL
Application: A077088 | Product #001 | TE Code: AB
Applicant: OXFORD PHARMACEUTICALS LLC
Approved: Oct 31, 2007 | RLD: No | RS: No | Type: RX